FAERS Safety Report 8960208 (Version 1)
Quarter: 2012Q4

REPORT INFORMATION
  Report Type: 
  Country: GB (occurrence: GB)
  Receive Date: 20121212
  Receipt Date: 20121212
  Transmission Date: 20130627
  Serious: Yes (Hospitalization)
  Sender: FDA-Public Use
  Company Number: GB-PFIZER INC-2012306821

PATIENT
  Age: 48 Year
  Sex: Male
  Weight: 87.4 kg

DRUGS (8)
  1. GENOTROPIN [Suspect]
     Indication: GROWTH HORMONE DEFICIENCY
     Dosage: 0.2 mg, 1x/day, 7 injections/week
     Route: 058
     Dates: start: 20051102
  2. DIHYDROCODEINE BITARTRATE [Concomitant]
     Indication: PAIN
     Dosage: UNK
     Dates: start: 19990107
  3. AMITRIPTYLINE [Concomitant]
     Indication: DEPRESSIVE ILLNESS
     Dosage: UNK
     Dates: start: 19990107
  4. AMITRIPTYLINE [Concomitant]
     Indication: SEDATION
  5. PHENYTOIN [Concomitant]
     Indication: NEURALGIA
     Dosage: UNK
     Dates: start: 19990126
  6. DICLOFENAC [Concomitant]
     Indication: PAIN
     Dosage: UNK
     Dates: start: 19990202
  7. THYROXINE [Concomitant]
     Indication: HYPOTHYROIDISM
     Dosage: UNK
     Dates: start: 20030507
  8. HYDROCORTISONE [Concomitant]
     Indication: ACTH DECREASED
     Dosage: UNK
     Dates: start: 20030507

REACTIONS (1)
  - Cardiac disorder [Unknown]
